FAERS Safety Report 21613429 (Version 1)
Quarter: 2022Q4

REPORT INFORMATION
  Report Type: Spontaneous
  Country: US (occurrence: None)
  Receive Date: 20221118
  Receipt Date: 20221118
  Transmission Date: 20230113
  Serious: No
  Sender: FDA-Public Use
  Company Number: 2022A351690

PATIENT
  Sex: Female
  Weight: 102.1 kg

DRUGS (2)
  1. FARXIGA [Suspect]
     Active Substance: DAPAGLIFLOZIN PROPANEDIOL
     Indication: Diabetes mellitus
     Route: 048
     Dates: start: 20220707, end: 20221018
  2. DOXYCYCLINE [Concomitant]
     Active Substance: DOXYCYCLINE

REACTIONS (2)
  - Furuncle [Unknown]
  - Perineal rash [Unknown]
